FAERS Safety Report 20226626 (Version 4)
Quarter: 2022Q1

REPORT INFORMATION
  Report Type: Spontaneous
  Country: CO (occurrence: CO)
  Receive Date: 20211224
  Receipt Date: 20220225
  Transmission Date: 20220423
  Serious: Yes (Hospitalization)
  Sender: FDA-Public Use
  Company Number: CO-ORG100014127-2021001569

PATIENT
  Age: 17 Year
  Sex: Female

DRUGS (4)
  1. LYSODREN [Suspect]
     Active Substance: MITOTANE
     Route: 048
     Dates: start: 20211221, end: 20220120
  2. LYSODREN [Suspect]
     Active Substance: MITOTANE
     Route: 048
     Dates: start: 20220124, end: 20220202
  3. LYSODREN [Suspect]
     Active Substance: MITOTANE
     Route: 048
     Dates: start: 20220203
  4. HYDROCORTISONE [Concomitant]
     Active Substance: HYDROCORTISONE
     Route: 048
     Dates: end: 20220203

REACTIONS (6)
  - Vaginal haemorrhage [Recovered/Resolved]
  - Abdominal pain lower [Recovered/Resolved]
  - Pyrexia [Recovered/Resolved]
  - Discomfort [Recovered/Resolved]
  - Fatigue [Recovered/Resolved]
  - Somnolence [Recovered/Resolved]

NARRATIVE: CASE EVENT DATE: 20211221
